FAERS Safety Report 8428820-7 (Version None)
Quarter: 2012Q2

REPORT INFORMATION
  Report Type: 
  Country: None (occurrence: None)
  Receive Date: 20120604
  Receipt Date: 20120522
  Transmission Date: 20120825
  Serious: Yes (Hospitalization, Other)
  Sender: FDA-Public Use
  Company Number: 2012MA006517

PATIENT
  Age: 32 Year
  Sex: Female

DRUGS (2)
  1. OMACOR [Suspect]
     Indication: BLOOD TRIGLYCERIDES INCREASED
     Dosage: 1000 MG, QD, PO
     Route: 048
  2. METFORMIN HYDROCHLORIDE [Suspect]
     Indication: BLOOD TRIGLYCERIDES INCREASED
     Dosage: 1000 MG, QD, PO
     Route: 048

REACTIONS (5)
  - CAESAREAN SECTION [None]
  - PREMATURE LABOUR [None]
  - PANCREATITIS [None]
  - MATERNAL EXPOSURE DURING PREGNANCY [None]
  - HYPERGLYCAEMIA [None]
